FAERS Safety Report 25424257 (Version 1)
Quarter: 2025Q2

REPORT INFORMATION
  Report Type: Spontaneous
  Country: US (occurrence: None)
  Receive Date: 20250611
  Receipt Date: 20250611
  Transmission Date: 20250717
  Serious: Yes (unspecified)
  Sender: FDA-CTU
  Company Number: None

PATIENT
  Age: 54 Year
  Sex: Male
  Weight: 81.9 kg

DRUGS (1)
  1. SERTRALINE HYDROCHLORIDE [Suspect]
     Active Substance: SERTRALINE HYDROCHLORIDE
     Indication: Depression
     Route: 048
     Dates: start: 20250320

REACTIONS (17)
  - Nausea [None]
  - Constipation [None]
  - Adverse drug reaction [None]
  - Depression [None]
  - Disease recurrence [None]
  - Sleep disorder [None]
  - Insomnia [None]
  - Fatigue [None]
  - Fatigue [None]
  - Tremor [None]
  - Tremor [None]
  - Hyperhidrosis [None]
  - Migraine [None]
  - Irritability [None]
  - Agitation [None]
  - Weight increased [None]
  - Libido decreased [None]

NARRATIVE: CASE EVENT DATE: 20250324
